FAERS Safety Report 18735449 (Version 1)
Quarter: 2021Q1

REPORT INFORMATION
  Report Type: Spontaneous
  Country: US (occurrence: US)
  Receive Date: 20210113
  Receipt Date: 20210113
  Transmission Date: 20210419
  Serious: Yes (Hospitalization)
  Sender: FDA-Public Use
  Company Number: None

PATIENT
  Sex: Female

DRUGS (8)
  1. ALBUTEROL/AER [Concomitant]
  2. BACLOFIN [Concomitant]
  3. FEROSUL [Concomitant]
     Active Substance: FERROUS SULFATE
  4. FAMOTIDINE. [Concomitant]
     Active Substance: FAMOTIDINE
  5. PLAN B [Concomitant]
     Active Substance: LEVONORGESTREL
  6. MAVYRET [Suspect]
     Active Substance: GLECAPREVIR\PIBRENTASVIR
     Indication: CHRONIC HEPATITIS C
     Route: 048
     Dates: start: 20201219
  7. FLUTICASONE. [Concomitant]
     Active Substance: FLUTICASONE
  8. ALBUTEROL NEB [Concomitant]
     Active Substance: ALBUTEROL

REACTIONS (2)
  - Hospitalisation [None]
  - Therapy interrupted [None]
